FAERS Safety Report 8392127-7 (Version None)
Quarter: 2012Q2

REPORT INFORMATION
  Report Type: 
  Country: None (occurrence: None)
  Receive Date: 20120529
  Receipt Date: 20120515
  Transmission Date: 20120825
  Serious: Yes (Other)
  Sender: FDA-Public Use
  Company Number: JP-JNJFOC-20120513411

PATIENT

DRUGS (4)
  1. INFLIXIMAB, RECOMBINANT [Suspect]
     Indication: BEHCET'S SYNDROME
     Dosage: AT 0, 2, AND 6 WEEKS AND EVERY 8 WEEKS THEREAFTER
     Route: 042
  2. COLCHICINE [Suspect]
     Indication: BEHCET'S SYNDROME
     Dosage: 0.5 TO 1.5 MG PER DAY
     Route: 065
  3. ANTIALLERGIC DRUGS [Concomitant]
     Indication: PREMEDICATION
     Route: 048
  4. CORTICOSTEROIDS [Concomitant]
     Indication: PREMEDICATION
     Route: 065

REACTIONS (2)
  - INFUSION RELATED REACTION [None]
  - CYTOMEGALOVIRUS INFECTION [None]
